FAERS Safety Report 18357631 (Version 3)
Quarter: 2020Q4

REPORT INFORMATION
  Report Type: Report from Study
  Country: None (occurrence: PR)
  Receive Date: 20201007
  Receipt Date: 20201207
  Transmission Date: 20210114
  Serious: Yes (Death, Hospitalization)
  Sender: FDA-Public Use
  Company Number: PR-ABBVIE-20P-131-3585695-00

PATIENT
  Age: 58 Year
  Sex: Female
  Weight: 40.95 kg

DRUGS (2)
  1. VENETOCLAX. [Suspect]
     Active Substance: VENETOCLAX
     Indication: BREAST CANCER METASTATIC
     Route: 048
     Dates: start: 20200908, end: 20200921
  2. CAPECITABINE. [Suspect]
     Active Substance: CAPECITABINE
     Indication: BREAST CANCER METASTATIC
     Dosage: BID - DAYS 1-14 EVERY  21 DAYS
     Route: 048
     Dates: start: 20200908, end: 20200921

REACTIONS (2)
  - Diarrhoea haemorrhagic [Recovered/Resolved]
  - Colitis [Fatal]

NARRATIVE: CASE EVENT DATE: 20200924
